FAERS Safety Report 14737996 (Version 1)
Quarter: 2018Q2

REPORT INFORMATION
  Report Type: Spontaneous
  Country: GB (occurrence: GB)
  Receive Date: 20180409
  Receipt Date: 20180409
  Transmission Date: 20180711
  Serious: Yes (Other)
  Sender: FDA-Public Use
  Company Number: GB-PERRIGO-18GB003788

PATIENT

DRUGS (2)
  1. DESOGESTREL [Concomitant]
     Active Substance: DESOGESTREL
     Indication: PRODUCT USED FOR UNKNOWN INDICATION
  2. MAX STRENGTH COLD AND FLU CAPSULES 12063/0066 [Suspect]
     Active Substance: ACETAMINOPHEN\CAFFEINE\PHENYLEPHRINE HYDROCHLORIDE
     Indication: VIRAL UPPER RESPIRATORY TRACT INFECTION
     Dosage: UNK
     Route: 048
     Dates: start: 20180317, end: 20180317

REACTIONS (7)
  - Eye pruritus [Recovering/Resolving]
  - Diarrhoea [Recovering/Resolving]
  - Hypersensitivity [Recovering/Resolving]
  - Respiratory tract oedema [Recovering/Resolving]
  - Ocular hyperaemia [Recovering/Resolving]
  - Eye swelling [Recovering/Resolving]
  - Ear pruritus [Recovering/Resolving]

NARRATIVE: CASE EVENT DATE: 20180317
